FAERS Safety Report 5386409-0 (Version None)
Quarter: 2007Q3

REPORT INFORMATION
  Report Type: 
  Country: None (occurrence: None)
  Receive Date: 20070710
  Receipt Date: 20070627
  Transmission Date: 20080115
  Serious: Yes (Hospitalization)
  Sender: FDA-Public Use
  Company Number: 100#08#2007-02356

PATIENT
  Age: 53 Year
  Sex: Female

DRUGS (3)
  1. PAROXETINE [Suspect]
     Indication: DRUG USE FOR UNKNOWN INDICATION
     Dosage: 20 MG --
  2. TRAMADOL HCL [Suspect]
     Indication: DRUG USE FOR UNKNOWN INDICATION
     Dosage: 200 MG --
  3. ALPRAZOLAM [Concomitant]

REACTIONS (7)
  - DELUSION OF GRANDEUR [None]
  - DRUG INTERACTION [None]
  - DYSPHASIA [None]
  - GRAND MAL CONVULSION [None]
  - MANIA [None]
  - SEROTONIN SYNDROME [None]
  - VISUAL DISTURBANCE [None]
